FAERS Safety Report 13055788 (Version 2)
Quarter: 2017Q2

REPORT INFORMATION
  Report Type: Report from Study
  Country: None (occurrence: BE)
  Receive Date: 20161222
  Receipt Date: 20170428
  Transmission Date: 20170830
  Serious: Yes (Hospitalization, Other)
  Sender: FDA-Public Use
  Company Number: BE-ABBVIE-15P-013-1463560-00

PATIENT
  Sex: Female

DRUGS (16)
  1. DUODOPA [Suspect]
     Active Substance: CARBIDOPA\LEVODOPA
     Dosage: AM=5.5ML; CD=3.2ML/HR DURING 16HRS; ED=1.5ML
     Route: 050
     Dates: start: 20160114, end: 20160120
  2. MARCOUMAR [Concomitant]
     Active Substance: PHENPROCOUMON
     Indication: PRODUCT USED FOR UNKNOWN INDICATION
  3. NOBITEN [Concomitant]
     Active Substance: NEBIVOLOL
     Indication: PRODUCT USED FOR UNKNOWN INDICATION
  4. SEROXAT [Concomitant]
     Active Substance: PAROXETINE HYDROCHLORIDE
     Indication: PRODUCT USED FOR UNKNOWN INDICATION
  5. DUODOPA [Suspect]
     Active Substance: CARBIDOPA\LEVODOPA
     Indication: PARKINSON^S DISEASE
     Route: 050
     Dates: start: 20150727, end: 20150730
  6. STALEVO [Concomitant]
     Active Substance: CARBIDOPA\ENTACAPONE\LEVODOPA
     Indication: PRODUCT USED FOR UNKNOWN INDICATION
     Dosage: FORM STRENGTH:100MG/50MG/200MG 5 PER DAY IF NEEDED
  7. DUODOPA [Suspect]
     Active Substance: CARBIDOPA\LEVODOPA
     Dosage: DOSAGE CONTINUOUSLY MONITORED AND ADJUSTED
     Route: 050
     Dates: start: 20150804, end: 20150907
  8. DUODOPA [Suspect]
     Active Substance: CARBIDOPA\LEVODOPA
     Dosage: AM DOSE=5.5ML, CD=2.8ML/H FOR 16HRS AND ED=1.5ML
     Route: 050
     Dates: start: 20150915, end: 20150926
  9. DUODOPA [Suspect]
     Active Substance: CARBIDOPA\LEVODOPA
     Dosage: AM DOSE=5.5ML, CD=2ML/H FOR 16HRS AND ED:1ML
     Route: 050
     Dates: start: 20150730, end: 20150804
  10. DUODOPA [Suspect]
     Active Substance: CARBIDOPA\LEVODOPA
     Dosage: AM: 5.5ML; CD: 3.6ML:H FOR 16HRS; ED: 1.5ML
     Route: 050
     Dates: start: 20161213, end: 20170424
  11. FEMARA [Concomitant]
     Active Substance: LETROZOLE
     Indication: PRODUCT USED FOR UNKNOWN INDICATION
  12. DUODOPA [Suspect]
     Active Substance: CARBIDOPA\LEVODOPA
     Dosage: AM DOSE=5.5ML, CD=3 ML/H FOR 16HRS AND ED=1.5ML
     Route: 050
     Dates: start: 20150926, end: 20160114
  13. DUODOPA [Suspect]
     Active Substance: CARBIDOPA\LEVODOPA
     Dosage: AM=5.5ML; CD=3.4ML/HR DURING 16HRS; ED=1.5ML
     Route: 050
     Dates: start: 20160120, end: 20161213
  14. DUODOPA [Suspect]
     Active Substance: CARBIDOPA\LEVODOPA
     Dosage: AM DOSE=5.5ML, CD=2.6ML/H FOR 16HRS AND ED=1.5ML
     Route: 050
     Dates: start: 20150907, end: 20150915
  15. DUODOPA [Suspect]
     Active Substance: CARBIDOPA\LEVODOPA
     Dosage: AM=5.5ML, CD=3.9ML/HR DURING 16HRS, ED=1.5ML
     Route: 050
     Dates: start: 20170424
  16. NEXIAM [Concomitant]
     Active Substance: ESOMEPRAZOLE
     Indication: PRODUCT USED FOR UNKNOWN INDICATION

REACTIONS (13)
  - On and off phenomenon [Unknown]
  - Upper limb fracture [Not Recovered/Not Resolved]
  - Depressed mood [Unknown]
  - Weight decreased [Unknown]
  - Freezing phenomenon [Not Recovered/Not Resolved]
  - Unevaluable event [Recovering/Resolving]
  - Lung neoplasm malignant [Not Recovered/Not Resolved]
  - Depression [Not Recovered/Not Resolved]
  - Stoma site discharge [Recovering/Resolving]
  - Fall [Unknown]
  - Stoma site extravasation [Recovering/Resolving]
  - Emotional disorder [Unknown]
  - Gait disturbance [Not Recovered/Not Resolved]
